FAERS Safety Report 9224432 (Version 1)
Quarter: 2013Q1

REPORT INFORMATION
  Report Type: Spontaneous
  Country: US (occurrence: None)
  Receive Date: 20120914
  Receipt Date: 20120914
  Transmission Date: 20140127
  Serious: Yes (Other)
  Sender: FDA-Public Use
  Company Number: JPI-P-021027

PATIENT
  Age: 17 Year
  Sex: Male

DRUGS (1)
  1. XYREM [Suspect]
     Indication: NARCOLEPSY
     Dosage: (3 GM 2 IN 1D)
     Route: 048
     Dates: start: 20120321

REACTIONS (2)
  - Blood pressure diastolic increased [None]
  - Headache [None]
